FAERS Safety Report 22099126 (Version 1)
Quarter: 2023Q1

REPORT INFORMATION
  Report Type: Spontaneous
  Country: US (occurrence: US)
  Receive Date: 20230315
  Receipt Date: 20230315
  Transmission Date: 20230418
  Serious: Yes (Other)
  Sender: FDA-Public Use
  Company Number: US-HORIZON THERAPEUTICS-HZN-2023-001827

PATIENT

DRUGS (10)
  1. TEPROTUMUMAB-TRBW [Suspect]
     Active Substance: TEPROTUMUMAB-TRBW
     Indication: Endocrine ophthalmopathy
     Dosage: FIRST INFUSION
     Route: 042
  2. TEPROTUMUMAB-TRBW [Suspect]
     Active Substance: TEPROTUMUMAB-TRBW
     Dosage: 3 INFUSION
     Route: 042
  3. TEPROTUMUMAB-TRBW [Suspect]
     Active Substance: TEPROTUMUMAB-TRBW
     Dosage: 4 INFUSION
     Route: 042
  4. TEPROTUMUMAB-TRBW [Suspect]
     Active Substance: TEPROTUMUMAB-TRBW
     Dosage: RESTATED  (HALF DOSE OF 10MG/KG )
     Route: 042
  5. TEPROTUMUMAB-TRBW [Suspect]
     Active Substance: TEPROTUMUMAB-TRBW
     Dosage: 3RD INFUSION (HALF DOSE OF 10MG/KG )
     Route: 042
  6. TEPROTUMUMAB-TRBW [Suspect]
     Active Substance: TEPROTUMUMAB-TRBW
     Dosage: 6TH INFUSION (HALF DOSE OF 10MG/KG )
     Route: 042
  7. PREDNISONE [Suspect]
     Active Substance: PREDNISONE
     Indication: Endocrine ophthalmopathy
     Route: 048
  8. FLUOROMETHOLONE [Concomitant]
     Active Substance: FLUOROMETHOLONE
     Indication: Endocrine ophthalmopathy
  9. SELENIUM [Concomitant]
     Active Substance: SELENIUM
     Indication: Endocrine ophthalmopathy
     Route: 048
  10. METHIMAZOLE [Concomitant]
     Active Substance: METHIMAZOLE
     Indication: Endocrine ophthalmopathy

REACTIONS (19)
  - Deafness neurosensory [Unknown]
  - Deafness bilateral [Unknown]
  - Urinary retention [Unknown]
  - Drug ineffective for unapproved indication [Unknown]
  - Ear discomfort [Unknown]
  - Autophony [Unknown]
  - Defaecation urgency [Unknown]
  - Condition aggravated [Unknown]
  - Drug intolerance [Unknown]
  - Nausea [Unknown]
  - Muscle spasms [Unknown]
  - Nocturia [Unknown]
  - Urinary tract infection [Unknown]
  - Off label use [Unknown]
  - Diarrhoea [Unknown]
  - Haemorrhoids [Unknown]
  - Pollakiuria [Unknown]
  - Frequent bowel movements [Unknown]
  - Madarosis [Unknown]
